FAERS Safety Report 19102050 (Version 1)
Quarter: 2021Q2

REPORT INFORMATION
  Report Type: Spontaneous
  Country: US (occurrence: US)
  Receive Date: 20210407
  Receipt Date: 20210407
  Transmission Date: 20210717
  Serious: No
  Sender: FDA-Public Use
  Company Number: US-SA-2021SA102144

PATIENT
  Age: 77 Year
  Sex: Male

DRUGS (2)
  1. LANTUS [Suspect]
     Active Substance: INSULIN GLARGINE
     Dosage: 60 IU, HS
     Route: 065
     Dates: start: 202009
  2. LANTUS [Suspect]
     Active Substance: INSULIN GLARGINE
     Dosage: 10 IU, HS
     Route: 065
     Dates: start: 202009

REACTIONS (1)
  - Intentional product use issue [Unknown]
